FAERS Safety Report 8513822-2 (Version None)
Quarter: 2012Q3

REPORT INFORMATION
  Report Type: 
  Country: None (occurrence: None)
  Receive Date: 20120717
  Receipt Date: 20120706
  Transmission Date: 20120928
  Serious: Yes (Hospitalization)
  Sender: FDA-Public Use
  Company Number: FR-VERTEX PHARMACEUTICALS INC.-000000000000001129

PATIENT
  Sex: Female
  Weight: 90 kg

DRUGS (10)
  1. INCIVO [Suspect]
     Indication: HEPATITIS C
     Dosage: DOSAGE FORM: TABLET
     Route: 065
     Dates: start: 20120316
  2. RIBAVIRIN [Concomitant]
     Indication: HEPATITIS C
     Dates: start: 20120316
  3. NEORECORMON [Concomitant]
     Dates: start: 20120507
  4. NEBIVOLOL HCL [Concomitant]
     Indication: RAYNAUD'S PHENOMENON
  5. LEVOTHYROXINE SODIUM [Concomitant]
     Indication: HYPOTHYROIDISM
  6. PEGASYS [Concomitant]
     Indication: HEPATITIS C
     Dates: start: 20120316
  7. DEXERYL [Concomitant]
     Indication: DRY SKIN
     Dosage: DOSAGE FORM: CREAM
     Dates: start: 20120316
  8. ALDACTONE [Concomitant]
  9. NEORECORMON [Concomitant]
     Indication: ANAEMIA
     Dates: start: 20120529
  10. OXOMEMAZINE [Concomitant]
     Indication: COUGH

REACTIONS (2)
  - DYSPNOEA [None]
  - ANAEMIA [None]
